FAERS Safety Report 6336610-4 (Version None)
Quarter: 2009Q3

REPORT INFORMATION
  Report Type: 
  Country: None (occurrence: None)
  Receive Date: 20090901
  Receipt Date: 20090821
  Transmission Date: 20100115
  Serious: Yes (Hospitalization, Other)
  Sender: FDA-Public Use
  Company Number: US-TYCO HEALTHCARE/MALLINCKRODT-T200901315

PATIENT
  Sex: Female

DRUGS (10)
  1. OPTIMARK [Suspect]
     Indication: NUCLEAR MAGNETIC RESONANCE IMAGING BRAIN
     Dosage: UNK
     Dates: start: 20040214, end: 20040214
  2. OPTIMARK [Suspect]
     Indication: ANGIOGRAM
     Dosage: UNK
     Dates: start: 20040220, end: 20040220
  3. OPTIMARK [Suspect]
     Indication: NUCLEAR MAGNETIC RESONANCE IMAGING
     Dosage: UNK
     Dates: start: 20060922, end: 20060922
  4. OPTIMARK [Suspect]
     Dosage: UNK
     Dates: start: 20061112, end: 20061112
  5. ZESTRIL [Concomitant]
  6. HYDROCHLOROTHIAZIDE [Concomitant]
  7. AUGMENTIN '125' [Concomitant]
  8. TOPROL-XL [Concomitant]
  9. NITROGLYCERIN [Concomitant]
  10. INSULIN [Concomitant]

REACTIONS (17)
  - ATRIAL TACHYCARDIA [None]
  - CHOLELITHIASIS [None]
  - CONVULSION [None]
  - ENCEPHALOPATHY [None]
  - FOOT FRACTURE [None]
  - GASTROOESOPHAGEAL REFLUX DISEASE [None]
  - GENERALISED ANXIETY DISORDER [None]
  - HEPATITIS [None]
  - HERNIA [None]
  - HYPERTENSIVE CRISIS [None]
  - IMPAIRED GASTRIC EMPTYING [None]
  - MAJOR DEPRESSION [None]
  - NEPHROGENIC SYSTEMIC FIBROSIS [None]
  - OFF LABEL USE [None]
  - PANCREATITIS [None]
  - PERITONEAL DIALYSIS COMPLICATION [None]
  - WOUND INFECTION [None]
